FAERS Safety Report 7991778-9 (Version None)
Quarter: 2011Q4

REPORT INFORMATION
  Report Type: 
  Country: None (occurrence: None)
  Receive Date: 20111219
  Receipt Date: 20111213
  Transmission Date: 20120403
  Serious: Yes (Hospitalization)
  Sender: FDA-Public Use
  Company Number: PHHY2011BR108858

PATIENT
  Sex: Female

DRUGS (2)
  1. ALBUTEROL [Suspect]
     Indication: ASTHMA
     Dosage: EVERY 6 HOURS, MATERNAL DOSE
     Route: 064
     Dates: start: 20111018
  2. FORMOTEROL FUMARATE [Suspect]
     Indication: ASTHMA
     Dosage: MATERNAL DOSE
     Route: 064
     Dates: start: 20111018

REACTIONS (1)
  - NEONATAL ASPIRATION [None]
